FAERS Safety Report 25161364 (Version 1)
Quarter: 2025Q2

REPORT INFORMATION
  Report Type: Spontaneous
  Country: US (occurrence: None)
  Receive Date: 20250403
  Receipt Date: 20250403
  Transmission Date: 20250716
  Serious: Yes (Hospitalization)
  Sender: FDA-CTU
  Company Number: None

PATIENT
  Age: 32 Year
  Sex: Female

DRUGS (5)
  1. AMBRISENTAN [Suspect]
     Active Substance: AMBRISENTAN
     Indication: Pulmonary arterial hypertension
     Dosage: FREQUENCY : DAILY;?
     Route: 048
  2. ADEMPAS [Concomitant]
     Active Substance: RIOCIGUAT
  3. SODIUM CHLOR SDV (50ML/FTV) [Concomitant]
  4. SODIUM CHLOR (100ML/BAG) [Concomitant]
  5. Central line [Concomitant]

REACTIONS (1)
  - Complication associated with device [None]

NARRATIVE: CASE EVENT DATE: 20250328
